FAERS Safety Report 7827121-5 (Version None)
Quarter: 2011Q4

REPORT INFORMATION
  Report Type: 
  Country: None (occurrence: None)
  Receive Date: 20111018
  Receipt Date: 20111003
  Transmission Date: 20120403
  Serious: Yes (Other)
  Sender: FDA-Public Use
  Company Number: 1000024082

PATIENT
  Age: 41 Year
  Sex: Male

DRUGS (6)
  1. ALPRAZOLAM [Concomitant]
  2. LEXAPRO [Suspect]
     Indication: DEPRESSION
     Dosage: SEE  IMAGE
     Route: 048
     Dates: start: 20110523, end: 20110718
  3. LEXAPRO [Suspect]
     Indication: DEPRESSION
     Dosage: SEE  IMAGE
     Route: 048
     Dates: start: 20110719, end: 20110809
  4. LEXAPRO [Suspect]
     Indication: DEPRESSION
     Dosage: SEE  IMAGE
     Route: 048
     Dates: start: 20110810, end: 20110822
  5. LEXAPRO [Suspect]
     Indication: DEPRESSION
     Dosage: SEE  IMAGE
     Route: 048
     Dates: start: 20110418, end: 20110522
  6. LEXAPRO [Suspect]
     Indication: DEPRESSION
     Dosage: 20 MG (20 MG, 1 IN 1 D),ORAL
     Route: 048
     Dates: start: 20110823, end: 20110920

REACTIONS (15)
  - AGITATION [None]
  - SINUSITIS [None]
  - WEIGHT DECREASED [None]
  - NAUSEA [None]
  - DIZZINESS [None]
  - DECREASED APPETITE [None]
  - WITHDRAWAL SYNDROME [None]
  - SUICIDAL IDEATION [None]
  - VOMITING [None]
  - PARAESTHESIA [None]
  - TINNITUS [None]
  - FATIGUE [None]
  - HYPERHIDROSIS [None]
  - HEADACHE [None]
  - PALPITATIONS [None]
